FAERS Safety Report 5518941-0 (Version None)
Quarter: 2007Q4

REPORT INFORMATION
  Report Type: 
  Country: None (occurrence: None)
  Receive Date: 20071113
  Receipt Date: 20071113
  Transmission Date: 20080405
  Serious: Yes (Other)
  Sender: FDA-Public Use
  Company Number: None

PATIENT
  Sex: Female
  Weight: 56.6996 kg

DRUGS (1)
  1. OPTIMARK [Suspect]
     Indication: NUCLEAR MAGNETIC RESONANCE IMAGING
     Dosage: 20CC -?-  ONE TIME
     Dates: start: 20071105, end: 20071105

REACTIONS (10)
  - ARTHRITIS [None]
  - ASTHENIA [None]
  - CHILLS [None]
  - CONTRAST MEDIA REACTION [None]
  - HEADACHE [None]
  - ILL-DEFINED DISORDER [None]
  - NAUSEA [None]
  - OSTEOMYELITIS [None]
  - SOMNOLENCE [None]
  - VERTIGO [None]
